FAERS Safety Report 4456290-2 (Version None)
Quarter: 2004Q3

REPORT INFORMATION
  Report Type: 
  Country: None (occurrence: None)
  Receive Date: 20040922
  Receipt Date: 20030605
  Transmission Date: 20050211
  Serious: Yes (Disabling, Other)
  Sender: FDA-Public Use
  Company Number: US-MERCK-0306USA00649

PATIENT
  Age: 48 Year
  Sex: Female
  Weight: 104 kg

DRUGS (8)
  1. TYLENOL [Concomitant]
     Route: 065
  2. ASPIRIN [Concomitant]
     Route: 065
  3. WELLBUTRIN SR [Concomitant]
     Indication: EX-SMOKER
     Route: 065
     Dates: start: 20010626
  4. KEFLEX [Concomitant]
     Indication: SUBCUTANEOUS ABSCESS
     Route: 065
  5. PEPCID [Concomitant]
     Indication: GASTROOESOPHAGEAL REFLUX DISEASE
     Route: 048
  6. TOPROL-XL [Suspect]
     Indication: SUPRAVENTRICULAR TACHYCARDIA
     Route: 065
  7. VIOXX [Suspect]
     Indication: TENDONITIS
     Route: 048
     Dates: start: 20010626
  8. VIOXX [Suspect]
     Indication: BURSITIS
     Route: 048
     Dates: start: 20010626

REACTIONS (11)
  - ADVERSE EVENT [None]
  - ASTHENIA [None]
  - BRADYCARDIA [None]
  - FATIGUE [None]
  - HYPERLIPIDAEMIA [None]
  - IATROGENIC INJURY [None]
  - OEDEMA PERIPHERAL [None]
  - PAIN IN EXTREMITY [None]
  - PALPITATIONS [None]
  - PULMONARY HYPERTENSION [None]
  - SUPRAVENTRICULAR TACHYCARDIA [None]
